FAERS Safety Report 17555949 (Version 6)
Quarter: 2020Q3

REPORT INFORMATION
  Report Type: Spontaneous
  Country: IL (occurrence: IL)
  Receive Date: 20200318
  Receipt Date: 20200806
  Transmission Date: 20201102
  Serious: Yes (Other)
  Sender: FDA-Public Use
  Company Number: IL-PFIZER INC-2018103719

PATIENT
  Age: 73 Year
  Sex: Female

DRUGS (14)
  1. ELELYSO [Suspect]
     Active Substance: TALIGLUCERASE ALFA
     Dosage: 1200 IU, TWICE A MONTH
     Route: 042
  2. ELELYSO [Suspect]
     Active Substance: TALIGLUCERASE ALFA
     Dosage: 1200 IU, TWICE A MONTH
     Route: 042
  3. ELELYSO [Suspect]
     Active Substance: TALIGLUCERASE ALFA
     Dosage: UNK
  4. ELELYSO [Suspect]
     Active Substance: TALIGLUCERASE ALFA
     Dosage: 1200 IU, TWICE A MONTH
     Route: 042
     Dates: start: 20200510
  5. ELELYSO [Suspect]
     Active Substance: TALIGLUCERASE ALFA
     Dosage: 1200 IU, TWICE A MONTH
     Route: 042
     Dates: start: 20200510
  6. ELELYSO [Suspect]
     Active Substance: TALIGLUCERASE ALFA
     Dosage: 1200 IU, TWICE A MONTH
     Route: 042
  7. JANUET [Concomitant]
     Active Substance: METFORMIN HYDROCHLORIDE\SITAGLIPTIN PHOSPHATE
     Indication: DIABETES MELLITUS
     Dosage: UNK, 2X/DAY
  8. ELELYSO [Suspect]
     Active Substance: TALIGLUCERASE ALFA
     Dosage: UNK
  9. ELELYSO [Suspect]
     Active Substance: TALIGLUCERASE ALFA
     Dosage: 1200 IU
     Route: 042
  10. ELELYSO [Suspect]
     Active Substance: TALIGLUCERASE ALFA
     Dosage: 1200 IU
     Route: 042
  11. ELELYSO [Suspect]
     Active Substance: TALIGLUCERASE ALFA
     Indication: GAUCHER^S DISEASE
     Dosage: 1200 IU, EVERY TWO WEEKS/TWICE A MONTH
     Route: 042
  12. ELELYSO [Suspect]
     Active Substance: TALIGLUCERASE ALFA
     Dosage: 1200 IU TWICE A MONTH, SCHEDULED FOR EVERY 2 WEEKS
     Dates: start: 20181028
  13. ELELYSO [Suspect]
     Active Substance: TALIGLUCERASE ALFA
     Dosage: 1200 IU, TWICE A MONTH
     Route: 042
  14. ELELYSO [Suspect]
     Active Substance: TALIGLUCERASE ALFA
     Dosage: 1200 IU, TWICE A MONTH
     Route: 042

REACTIONS (25)
  - Liver disorder [Unknown]
  - Product dose omission issue [Unknown]
  - Incorrect dose administered [Unknown]
  - Hepatic cirrhosis [Unknown]
  - Helicobacter infection [Unknown]
  - Fall [Unknown]
  - Productive cough [Recovered/Resolved]
  - Gastritis [Unknown]
  - Hepatomegaly [Unknown]
  - Hepatic steatosis [Unknown]
  - Pain in extremity [Unknown]
  - Abdominal pain upper [Recovered/Resolved]
  - Oropharyngeal pain [Recovered/Resolved]
  - Rhinorrhoea [Unknown]
  - Hepatic fibrosis [Unknown]
  - Abdominal hernia [Unknown]
  - Inappropriate schedule of product administration [Unknown]
  - Blood glucose abnormal [Unknown]
  - Dizziness [Recovered/Resolved]
  - Portal tract inflammation [Unknown]
  - Blood glucose increased [Unknown]
  - Hernia pain [Unknown]
  - Cough [Recovering/Resolving]
  - Abdominal pain [Recovered/Resolved]
  - Breast disorder [Unknown]

NARRATIVE: CASE EVENT DATE: 201807
